FAERS Safety Report 12466506 (Version 2)
Quarter: 2016Q2

REPORT INFORMATION
  Report Type: Spontaneous
  Country: ES (occurrence: ES)
  Receive Date: 20160615
  Receipt Date: 20160620
  Transmission Date: 20160815
  Serious: Yes (Other)
  Sender: FDA-Public Use
  Company Number: ES-BEH-2016070166

PATIENT
  Age: 67 Year
  Sex: Male

DRUGS (1)
  1. HUMAN IMMUNOGLOBULIN (NC) [Suspect]
     Active Substance: HUMAN IMMUNOGLOBULIN G
     Indication: ATAXIA
     Route: 042

REACTIONS (10)
  - Skin lesion [Recovered/Resolved]
  - Rash vesicular [Recovered/Resolved]
  - Rash erythematous [Recovered/Resolved]
  - Dyshidrotic eczema [Recovered/Resolved]
  - Eczema [Recovered/Resolved]
  - Skin disorder [Recovered/Resolved]
  - Perivascular dermatitis [Recovered/Resolved]
  - Inflammation [Recovered/Resolved]
  - Extravasation blood [Recovered/Resolved]
  - Dermatitis psoriasiform [Recovered/Resolved]
